FAERS Safety Report 7155633-9 (Version None)
Quarter: 2010Q4

REPORT INFORMATION
  Report Type: 
  Country: None (occurrence: None)
  Receive Date: 20101214
  Receipt Date: 20091118
  Transmission Date: 20110411
  Serious: No
  Sender: FDA-Public Use
  Company Number: US-AMGEN-KDL375502

PATIENT

DRUGS (2)
  1. ENBREL [Suspect]
     Indication: ANKYLOSING SPONDYLITIS
     Dosage: 25 MG, 2 TIMES/WK
     Route: 058
     Dates: start: 20071001
  2. ADALIMUMAB [Concomitant]

REACTIONS (4)
  - ANKYLOSING SPONDYLITIS [None]
  - DRUG DOSE OMISSION [None]
  - IMPAIRED HEALING [None]
  - SKIN ULCER [None]
